FAERS Safety Report 5016434-0 (Version None)
Quarter: 2006Q2

REPORT INFORMATION
  Report Type: 
  Country: None (occurrence: None)
  Receive Date: 20060602
  Receipt Date: 20060523
  Transmission Date: 20061013
  Serious: Yes (Other)
  Sender: FDA-Public Use
  Company Number: GB-BRISTOL-MYERS SQUIBB COMPANY-13388020

PATIENT
  Age: 84 Year
  Sex: Female

DRUGS (1)
  1. APROVEL [Suspect]
     Indication: HYPERTENSION
     Dosage: STOPPED ^RECENTLY^ AFTER THE PATIENT WENT INTO A DIABETIC COMA WHERE HER BP DROPPED

REACTIONS (7)
  - BACK PAIN [None]
  - BRONCHITIS [None]
  - DIABETIC COMA [None]
  - DYSPNOEA [None]
  - HEADACHE [None]
  - HYPOTENSION [None]
  - MYALGIA [None]
